FAERS Safety Report 21577668 (Version 3)
Quarter: 2022Q4

REPORT INFORMATION
  Report Type: Report from Study
  Country: US (occurrence: US)
  Receive Date: 20221110
  Receipt Date: 20221123
  Transmission Date: 20230113
  Serious: No
  Sender: FDA-Public Use
  Company Number: US-002147023-NVSC2022US251427

PATIENT
  Sex: Male

DRUGS (3)
  1. ENTRESTO [Suspect]
     Active Substance: SACUBITRIL\VALSARTAN
     Indication: Cardiac failure
     Dosage: 1 DOSAGE FORM, BID (24/26 MG)
     Route: 048
  2. ENTRESTO [Suspect]
     Active Substance: SACUBITRIL\VALSARTAN
     Dosage: 1 DOSAGE FORM, BID (49/51MG)
     Route: 048
     Dates: start: 20220815
  3. ENTRESTO [Suspect]
     Active Substance: SACUBITRIL\VALSARTAN
     Dosage: UNK, BID (49/51MG TABLET IN THE MORNING AND THE 24/26MG TABLET IN THE EVENING)
     Route: 048
     Dates: start: 202208

REACTIONS (5)
  - Aortic valve calcification [Not Recovered/Not Resolved]
  - Decreased activity [Unknown]
  - Dizziness [Unknown]
  - Hypotension [Unknown]
  - Incorrect dose administered [Unknown]
